FAERS Safety Report 6013886-4 (Version None)
Quarter: 2008Q4

REPORT INFORMATION
  Report Type: 
  Country: None (occurrence: None)
  Receive Date: 20081216
  Receipt Date: 20071130
  Transmission Date: 20090506
  Serious: Yes (Other)
  Sender: FDA-Public Use
  Company Number: US-WYE-H01576207

PATIENT
  Age: 31 Year
  Sex: Female
  Weight: 63.56 kg

DRUGS (2)
  1. EFFEXOR XR [Suspect]
     Indication: DEPRESSION
     Dosage: ^TOOK 28 PILLS AT ONCE^, ORAL
     Route: 048
     Dates: start: 20071117, end: 20071117
  2. ETHANOL (ETHANOL, ) [Suspect]
     Dosage: ^WENT OUT DRINKING^
     Dates: start: 20071117, end: 20071117

REACTIONS (2)
  - INTENTIONAL OVERDOSE [None]
  - MALAISE [None]
